FAERS Safety Report 11574322 (Version 1)
Quarter: 2015Q3

REPORT INFORMATION
  Report Type: Spontaneous
  Country: US (occurrence: None)
  Receive Date: 20150929
  Receipt Date: 20150929
  Transmission Date: 20151125
  Serious: No
  Sender: FDA-Public Use
  Company Number: None

PATIENT
  Age: 16 Year
  Sex: Female
  Weight: 49.9 kg

DRUGS (4)
  1. COMPAZINE [Suspect]
     Active Substance: PROCHLORPERAZINE MALEATE
     Indication: DEHYDRATION
     Route: 042
     Dates: start: 20150908, end: 20150908
  2. ZYRTEC [Concomitant]
     Active Substance: CETIRIZINE HYDROCHLORIDE
  3. VYANESE [Concomitant]
  4. COMPAZINE [Suspect]
     Active Substance: PROCHLORPERAZINE MALEATE
     Indication: HEADACHE
     Route: 042
     Dates: start: 20150908, end: 20150908

REACTIONS (6)
  - Anxiety [None]
  - Crying [None]
  - Adverse drug reaction [None]
  - Feeling abnormal [None]
  - Formication [None]
  - Restlessness [None]

NARRATIVE: CASE EVENT DATE: 20150908
